APPROVED DRUG PRODUCT: PROSTAPHLIN
Active Ingredient: OXACILLIN SODIUM
Strength: EQ 500MG BASE
Dosage Form/Route: CAPSULE;ORAL
Application: N050118 | Product #002
Applicant: APOTHECON INC DIV BRISTOL MYERS SQUIBB
Approved: Approved Prior to Jan 1, 1982 | RLD: No | RS: No | Type: DISCN